FAERS Safety Report 16790963 (Version 1)
Quarter: 2019Q3

REPORT INFORMATION
  Report Type: Spontaneous
  Country: CN (occurrence: CN)
  Receive Date: 20190910
  Receipt Date: 20190910
  Transmission Date: 20191005
  Serious: Yes (Other)
  Sender: FDA-Public Use
  Company Number: CN-PFIZER INC-2019391572

PATIENT
  Age: 68 Year
  Sex: Male

DRUGS (1)
  1. MEPEM [Suspect]
     Active Substance: MEROPENEM
     Dosage: 1 G, 3X/DAY
     Dates: start: 20190718, end: 20190728

REACTIONS (1)
  - Liver injury [Recovering/Resolving]

NARRATIVE: CASE EVENT DATE: 20190726
